FAERS Safety Report 13448640 (Version 1)
Quarter: 2017Q2

REPORT INFORMATION
  Report Type: Spontaneous
  Country: SE (occurrence: SE)
  Receive Date: 20170417
  Receipt Date: 20170417
  Transmission Date: 20170830
  Serious: Yes (Hospitalization)
  Sender: FDA-Public Use
  Company Number: SE-TEVA-757453ACC

PATIENT
  Age: 62 Year
  Sex: Male

DRUGS (6)
  1. METOPROLOL ORION [Concomitant]
     Active Substance: METOPROLOL
  2. ENALAPRIL ACTAVIS [Concomitant]
     Active Substance: ENALAPRIL
  3. XARELTO [Concomitant]
     Active Substance: RIVAROXABAN
  4. OXASCAND [Suspect]
     Active Substance: OXAZEPAM
     Indication: SLEEP DISORDER
     Dosage: CA 300 MG (SINGELDOSE)
     Route: 048
     Dates: start: 20141215, end: 20141215
  5. SIMVASTATIN ARROW [Concomitant]
     Active Substance: SIMVASTATIN
  6. ALVEDON FORTE [Concomitant]

REACTIONS (3)
  - Depressed level of consciousness [Recovered/Resolved]
  - Medication error [Recovered/Resolved]
  - Toxicity to various agents [Recovered/Resolved]

NARRATIVE: CASE EVENT DATE: 20141215
